FAERS Safety Report 8546043-8 (Version None)
Quarter: 2012Q3

REPORT INFORMATION
  Report Type: 
  Country: None (occurrence: None)
  Receive Date: 20120727
  Receipt Date: 20120209
  Transmission Date: 20120928
  Serious: No
  Sender: FDA-Public Use
  Company Number: US-ASTRAZENECA-2011SE73414

PATIENT
  Age: 58 Year
  Sex: Male

DRUGS (4)
  1. SEROQUEL XR [Suspect]
     Route: 048
  2. LAMICTAL [Concomitant]
  3. SEROQUEL XR [Suspect]
     Indication: BIPOLAR DISORDER
     Route: 048
  4. SEROQUEL XR [Suspect]
     Route: 048

REACTIONS (17)
  - VOMITING [None]
  - FATIGUE [None]
  - MENTAL STATUS CHANGES [None]
  - DRUG DOSE OMISSION [None]
  - WITHDRAWAL SYNDROME [None]
  - ANXIETY [None]
  - BIPOLAR DISORDER [None]
  - EMOTIONAL DISTRESS [None]
  - PANIC REACTION [None]
  - INSOMNIA [None]
  - IRRITABILITY [None]
  - MALAISE [None]
  - CONFUSIONAL STATE [None]
  - ACTIVITIES OF DAILY LIVING IMPAIRED [None]
  - MEMORY IMPAIRMENT [None]
  - FEELING ABNORMAL [None]
  - ANGER [None]
